FAERS Safety Report 7396772-7 (Version None)
Quarter: 2011Q1

REPORT INFORMATION
  Report Type: 
  Country: None (occurrence: None)
  Receive Date: 20110325
  Receipt Date: 20110316
  Transmission Date: 20110831
  Serious: Yes (Hospitalization, Disabling, Other)
  Sender: FDA-Public Use
  Company Number: 814826

PATIENT
  Age: 51 Year
  Sex: Male

DRUGS (1)
  1. GEMCITABINE HYDROCHLORIDE [Suspect]
     Indication: ADENOCARCINOMA PANCREAS
     Dosage: 2000 MG MILLIGRAM(S), UNKNOWN, INTRAVENOUS
     Route: 042
     Dates: start: 20101223, end: 20110113

REACTIONS (4)
  - SKIN NECROSIS [None]
  - CYANOSIS [None]
  - EXTREMITY NECROSIS [None]
  - ARTERIAL OCCLUSIVE DISEASE [None]
